FAERS Safety Report 5747925-2 (Version None)
Quarter: 2008Q2

REPORT INFORMATION
  Report Type: 
  Country: None (occurrence: None)
  Receive Date: 20080523
  Receipt Date: 20080515
  Transmission Date: 20081010
  Serious: Yes (Other)
  Sender: FDA-Public Use
  Company Number: US-JNJFOC-20080402133

PATIENT
  Sex: Female
  Weight: 75.6 kg

DRUGS (6)
  1. REMICADE [Suspect]
     Indication: IRRITABLE BOWEL SYNDROME
     Route: 042
  2. REMICADE [Suspect]
     Indication: CROHN'S DISEASE
     Route: 042
  3. PENTASA [Concomitant]
  4. FLAGYL [Concomitant]
  5. PREVACID [Concomitant]
  6. FLORA-Q [Concomitant]

REACTIONS (3)
  - INFUSION RELATED REACTION [None]
  - SPLENOMEGALY [None]
  - VOMITING [None]
